FAERS Safety Report 6460278-X (Version None)
Quarter: 2009Q4

REPORT INFORMATION
  Report Type: 
  Country: None (occurrence: None)
  Receive Date: 20091130
  Receipt Date: 20091118
  Transmission Date: 20100525
  Serious: Yes (Hospitalization)
  Sender: FDA-Public Use
  Company Number: PHHY2009FR50769

PATIENT
  Sex: Female

DRUGS (7)
  1. VOLTAREN [Suspect]
     Indication: BACK PAIN
     Dosage: 75 MG, BID
     Route: 048
     Dates: start: 20090727, end: 20090730
  2. KARDEGIC [Interacting]
     Dosage: 160 MG, 1 DF DAILY
     Route: 048
  3. VALSARTAN AND HYDROCHLOROTHIAZIDE [Concomitant]
     Route: 048
  4. TAHOR [Concomitant]
     Dosage: 10 MG, UNK
     Route: 048
  5. DOLIPRANE [Concomitant]
     Dosage: 500 MG, UNK
  6. STRUCTUM [Concomitant]
     Dosage: 2 DF DAILY
     Route: 048
  7. IMOVANE [Concomitant]
     Dosage: 1 DF DAILY
     Route: 048

REACTIONS (5)
  - ABDOMINAL PAIN UPPER [None]
  - COLONIC POLYP [None]
  - DIVERTICULUM INTESTINAL [None]
  - OESOPHAGEAL ULCER [None]
  - RECTAL HAEMORRHAGE [None]
